FAERS Safety Report 20729456 (Version 3)
Quarter: 2022Q2

REPORT INFORMATION
  Report Type: Report from Study
  Country: GB (occurrence: GB)
  Receive Date: 20220420
  Receipt Date: 20220626
  Transmission Date: 20220721
  Serious: Yes (Life-Threatening, Hospitalization, Other)
  Sender: FDA-Public Use
  Company Number: GB-BRISTOL-MYERS SQUIBB COMPANY-2022-020346

PATIENT
  Age: 69 Year
  Sex: Female

DRUGS (1)
  1. ORENCIA [Suspect]
     Active Substance: ABATACEPT
     Indication: Rheumatoid arthritis
     Dosage: FREQUENCY : EVERY 14 DAYS
     Route: 058

REACTIONS (5)
  - Vomiting [Unknown]
  - Malaise [Unknown]
  - Confusional state [Unknown]
  - Coma [Recovering/Resolving]
  - Off label use [Unknown]
